FAERS Safety Report 4727411-9 (Version None)
Quarter: 2005Q3

REPORT INFORMATION
  Report Type: 
  Country: None (occurrence: None)
  Receive Date: 20050726
  Receipt Date: 20040416
  Transmission Date: 20060218
  Serious: Yes (Life-Threatening)
  Sender: FDA-Public Use
  Company Number: 04LEB0080 123

PATIENT
  Sex: Female

DRUGS (5)
  1. INJ TIROFIBAN HCL (INJECTION) [Suspect]
     Indication: ANGINA UNSTABLE
     Dates: start: 20040401, end: 20040403
  2. ASPIRIN [Concomitant]
  3. EXONAPARIN SODIUM [Concomitant]
  4. LOSARTAN [Concomitant]
  5. AGGRASTAT [Suspect]
     Dosage: INTRAVENOUS
     Route: 042
     Dates: start: 20040401, end: 20040403

REACTIONS (1)
  - THROMBOCYTOPENIA [None]
